FAERS Safety Report 10498292 (Version 2)
Quarter: 2014Q4

REPORT INFORMATION
  Report Type: Spontaneous
  Country: GB (occurrence: GB)
  Receive Date: 20141006
  Receipt Date: 20141104
  Transmission Date: 20150528
  Serious: Yes (Hospitalization)
  Sender: FDA-Public Use
  Company Number: GB-TEVA-512333ISR

PATIENT
  Age: 67 Year
  Sex: Female
  Weight: 95 kg

DRUGS (17)
  1. SERETIDE [Concomitant]
     Active Substance: FLUTICASONE FUROATE\SALMETEROL XINAFOATE
     Dosage: 4 DOSAGE FORMS DAILY;
     Route: 055
  2. VENTOLIN [Concomitant]
     Active Substance: ALBUTEROL SULFATE
     Route: 055
  3. WARFARIN [Concomitant]
     Active Substance: WARFARIN
  4. COCODAMOL [Concomitant]
     Active Substance: ACETAMINOPHEN\CODEINE PHOSPHATE
     Dosage: 30/500 MG ONE OR TWO FOUR TIMES DAILY
  5. VICTOZA [Concomitant]
     Active Substance: LIRAGLUTIDE
     Dosage: CEASED ON HOSPITAL ADMISSION.
     Route: 030
  6. FUROSEMIDE. [Concomitant]
     Active Substance: FUROSEMIDE
     Dosage: INCREASED BY CONSULTANT TO 80 MG BD FOR ONE MONTH THEN REDUCED BACK TO 120 MG DAILY AS BEFORE.
  7. SPIRONOLACTONE. [Concomitant]
     Active Substance: SPIRONOLACTONE
     Dosage: 25 MILLIGRAM DAILY;
  8. CARBOCISTEINE [Concomitant]
     Active Substance: CARBOCYSTEINE
     Dosage: 2250 MILLIGRAM DAILY;
     Route: 048
  9. LANSOPRAZOLE. [Concomitant]
     Active Substance: LANSOPRAZOLE
     Dosage: 30 MILLIGRAM DAILY;
  10. METOCLOPRAMIDE. [Concomitant]
     Active Substance: METOCLOPRAMIDE
     Dosage: 30 MILLIGRAM DAILY;
  11. AMLODIPINE [Concomitant]
     Active Substance: AMLODIPINE BESYLATE
     Dosage: 5 MILLIGRAM DAILY; CEASED ON HOSPITAL ADMISSION.
  12. METFORMIN [Concomitant]
     Active Substance: METFORMIN HYDROCHLORIDE
     Indication: DIABETES MELLITUS
     Dosage: 2 GRAM DAILY; CEASED ON HOSPITAL ADMISSION.
  13. DIAZEPAM. [Concomitant]
     Active Substance: DIAZEPAM
     Dosage: 2MG AS NECESSARY (PRN) MAXIMAL TWICE DAILY. CEASED ON HOSPITAL ADMISSION.
  14. GLICLAZIDE [Concomitant]
     Active Substance: GLICLAZIDE
     Dosage: 160 MILLIGRAM DAILY;
  15. TIOTROPIUM BROMIDE [Concomitant]
     Active Substance: TIOTROPIUM BROMIDE
     Dosage: 18 MICROGRAM DAILY;
  16. AZITHROMYCIN [Suspect]
     Active Substance: AZITHROMYCIN ANHYDROUS
     Indication: CHRONIC OBSTRUCTIVE PULMONARY DISEASE
     Dosage: 250 MILLIGRAM DAILY; CEASED ON HOSPITAL ADMISSION.
     Route: 048
     Dates: start: 20140819, end: 20140904
  17. DIGOXIN. [Suspect]
     Active Substance: DIGOXIN
     Indication: ATRIAL FIBRILLATION
     Dosage: 250 MICROGRAM DAILY;
     Route: 048
     Dates: start: 2004, end: 20140916

REACTIONS (10)
  - Bradycardia [Unknown]
  - Toxicity to various agents [Unknown]
  - Abdominal pain [Unknown]
  - Dehydration [Unknown]
  - International normalised ratio increased [Unknown]
  - Hypotension [Unknown]
  - Renal injury [Unknown]
  - Vomiting [Unknown]
  - Nausea [Unknown]
  - Lethargy [Unknown]

NARRATIVE: CASE EVENT DATE: 20140904
